FAERS Safety Report 4394716-3 (Version None)
Quarter: 2004Q3

REPORT INFORMATION
  Report Type: 
  Country: None (occurrence: None)
  Receive Date: 20040712
  Receipt Date: 20040525
  Transmission Date: 20050211
  Serious: Yes (Other)
  Sender: FDA-Public Use
  Company Number: 200412133FR

PATIENT
  Age: 73 Year
  Sex: Male

DRUGS (7)
  1. ARAVA [Suspect]
     Indication: RHEUMATOID ARTHRITIS
     Route: 048
     Dates: start: 20040131, end: 20040405
  2. DI-ANTALVIC [Suspect]
     Route: 048
     Dates: start: 20040110, end: 20040405
  3. CORTANCYL [Concomitant]
     Route: 048
     Dates: start: 20040301, end: 20040301
  4. CALCIUM WITH VITAMIN D [Concomitant]
     Route: 048
  5. TAREG [Concomitant]
     Indication: HYPERTENSION
     Route: 048
  6. ZOLTUM [Concomitant]
     Route: 048
  7. STILNOX [Concomitant]
     Route: 048

REACTIONS (10)
  - ALANINE AMINOTRANSFERASE INCREASED [None]
  - ASPARTATE AMINOTRANSFERASE INCREASED [None]
  - BLOOD ALKALINE PHOSPHATASE INCREASED [None]
  - EOSINOPHIL COUNT ABNORMAL [None]
  - GAMMA-GLUTAMYLTRANSFERASE INCREASED [None]
  - HAEMOGLOBIN DECREASED [None]
  - HEPATOCELLULAR DAMAGE [None]
  - PLATELET COUNT INCREASED [None]
  - PRURITUS [None]
  - RED BLOOD CELL SEDIMENTATION RATE INCREASED [None]
